FAERS Safety Report 11241057 (Version 3)
Quarter: 2015Q3

REPORT INFORMATION
  Report Type: Report from Study
  Country: US (occurrence: US)
  Receive Date: 20150706
  Receipt Date: 20150717
  Transmission Date: 20151125
  Serious: Yes (Hospitalization, Other)
  Sender: FDA-Public Use
  Company Number: US-GLAXOSMITHKLINE-US2015GSK094458

PATIENT
  Age: 50 Year
  Sex: Female
  Weight: 58.6 kg

DRUGS (16)
  1. MAGNESIUM OXIDE. [Concomitant]
     Active Substance: MAGNESIUM OXIDE
     Dosage: 400 MG, QD
     Route: 048
     Dates: start: 20150407
  2. LACTOBACILLUS [Concomitant]
     Active Substance: LACTOBACILLUS ACIDOPHILUS
     Dosage: 100 MG, QD
     Route: 048
     Dates: start: 20140107
  3. SYSTANE GEL [Concomitant]
     Dosage: 1 DROP
     Route: 047
     Dates: start: 20140904
  4. DABRAFENIB [Suspect]
     Active Substance: DABRAFENIB
     Indication: CHOLANGIOCARCINOMA
     Dosage: 150 MG, UNK
     Route: 048
     Dates: start: 20150331, end: 20150624
  5. SYNTHROID [Concomitant]
     Active Substance: LEVOTHYROXINE SODIUM
     Dosage: 75 UNK, UNK
     Route: 048
     Dates: start: 20150407
  6. TRIAMCINOLONE ACETONIDE. [Concomitant]
     Active Substance: TRIAMCINOLONE ACETONIDE
     Dosage: UNK, BID
     Route: 048
     Dates: start: 20140107
  7. LISINOPRIL. [Concomitant]
     Active Substance: LISINOPRIL
     Dosage: 5 MG, QD
     Route: 048
     Dates: start: 20140107
  8. MOMETASONE [Concomitant]
     Active Substance: MOMETASONE
     Dosage: 50 MCG, UNK
     Route: 045
     Dates: start: 20140115
  9. PAZOPANIB [Suspect]
     Active Substance: PAZOPANIB
     Indication: CHOLANGIOCARCINOMA
     Dosage: 800 MG, UNK
     Route: 048
     Dates: start: 20150331, end: 20150624
  10. GABAPENTIN. [Concomitant]
     Active Substance: GABAPENTIN
     Dosage: 300 MG, TID
     Route: 048
     Dates: start: 20140107
  11. LISINOPRIL. [Concomitant]
     Active Substance: LISINOPRIL
     Dosage: 10 UNK, UNK
     Route: 048
     Dates: start: 20140312
  12. MELATONIN [Concomitant]
     Active Substance: MELATONIN
     Dosage: 10 MG, UNK
     Dates: start: 20150407
  13. REFRESH OPTIVE ADVANCED [Concomitant]
     Active Substance: CARBOXYMETHYLCELLULOSE SODIUM\GLYCERIN\POLYSORBATE 80
     Dosage: 1 DROP
     Route: 047
     Dates: start: 20140904
  14. LIDOCAINE. [Concomitant]
     Active Substance: LIDOCAINE
     Dosage: 1 APPLICATION
     Dates: start: 20140616
  15. TRAMADOL. [Concomitant]
     Active Substance: TRAMADOL
     Indication: PAIN
     Dosage: UNK, PRN
     Route: 048
  16. LOVAZA [Concomitant]
     Active Substance: OMEGA-3-ACID ETHYL ESTERS
     Indication: HYPERCHOLESTEROLAEMIA
     Dosage: UNK, BID
     Route: 048

REACTIONS (5)
  - Blood alkaline phosphatase increased [Not Recovered/Not Resolved]
  - Blood bilirubin increased [Not Recovered/Not Resolved]
  - Aspartate aminotransferase increased [Not Recovered/Not Resolved]
  - Blood cholesterol increased [Not Recovered/Not Resolved]
  - Alanine aminotransferase increased [Not Recovered/Not Resolved]

NARRATIVE: CASE EVENT DATE: 20150625
